FAERS Safety Report 13434589 (Version 1)
Quarter: 2017Q2

REPORT INFORMATION
  Report Type: Spontaneous
  Country: US (occurrence: US)
  Receive Date: 20170412
  Receipt Date: 20170412
  Transmission Date: 20170830
  Serious: No
  Sender: FDA-Public Use
  Company Number: None

PATIENT
  Age: 52 Year
  Sex: Female
  Weight: 85.5 kg

DRUGS (4)
  1. PHENYTOIN. [Suspect]
     Active Substance: PHENYTOIN
     Indication: SEIZURE
     Dosage: ?          QUANTITY:5 TABLET(S);OTHER FREQUENCY:PER DAY;?
     Route: 048
     Dates: start: 20170327, end: 20170330
  2. CYMBALTA [Concomitant]
     Active Substance: DULOXETINE HYDROCHLORIDE
  3. LYRICA [Concomitant]
     Active Substance: PREGABALIN
  4. DILANTIN [Concomitant]
     Active Substance: PHENYTOIN

REACTIONS (3)
  - Disturbance in attention [None]
  - Headache [None]
  - Product substitution issue [None]

NARRATIVE: CASE EVENT DATE: 20170328
